FAERS Safety Report 24724869 (Version 1)
Quarter: 2024Q4

REPORT INFORMATION
  Report Type: Spontaneous
  Country: BR (occurrence: BR)
  Receive Date: 20241212
  Receipt Date: 20241212
  Transmission Date: 20250114
  Serious: Yes (Disabling, Other)
  Sender: SANOFI AVENTIS
  Company Number: BR-SA-2024SA364264

PATIENT
  Age: 42 Year
  Sex: Male

DRUGS (3)
  1. LANTUS [Suspect]
     Active Substance: INSULIN GLARGINE
     Indication: Diabetes mellitus
     Dosage: 30 U
  2. LANTUS [Suspect]
     Active Substance: INSULIN GLARGINE
     Dosage: UNK
  3. INSULIN HUMAN [Suspect]
     Active Substance: INSULIN HUMAN
     Indication: Diabetes mellitus
     Dosage: 5 UNITS WHEN BLOOD GLUCOSE IS OVER 200
     Dates: start: 2017

REACTIONS (7)
  - Eye haemorrhage [Unknown]
  - Blindness [Unknown]
  - Leg amputation [Unknown]
  - Leukaemia [Unknown]
  - Visual impairment [Unknown]
  - Blood glucose abnormal [Unknown]
  - Incorrect dose administered [Unknown]

NARRATIVE: CASE EVENT DATE: 20240101
